FAERS Safety Report 21766758 (Version 2)
Quarter: 2022Q4

REPORT INFORMATION
  Report Type: Spontaneous
  Country: JP (occurrence: JP)
  Receive Date: 20221222
  Receipt Date: 20221230
  Transmission Date: 20230113
  Serious: Yes (Other)
  Sender: FDA-Public Use
  Company Number: JP-PFIZER INC-PV202200128739

PATIENT
  Age: 9 Decade
  Sex: Female

DRUGS (14)
  1. PAXLOVID [Suspect]
     Active Substance: NIRMATRELVIR\RITONAVIR
     Indication: COVID-19 treatment
     Dosage: UNK
     Route: 048
     Dates: start: 20221217
  2. BENIDIPINE [Concomitant]
     Active Substance: BENIDIPINE
     Route: 048
  3. BISOPROLOL [Concomitant]
     Active Substance: BISOPROLOL
     Route: 048
  4. TELMISARTAN [Concomitant]
     Active Substance: TELMISARTAN
     Route: 048
  5. METHYLCOBALAMIN [Concomitant]
     Active Substance: METHYLCOBALAMIN
  6. NEXIUM [Concomitant]
     Active Substance: ESOMEPRAZOLE MAGNESIUM
  7. MIROGABALIN BESYLATE [Concomitant]
     Active Substance: MIROGABALIN BESYLATE
  8. ASPIRIN [Concomitant]
     Active Substance: ASPIRIN
  9. ZETIA [Concomitant]
     Active Substance: EZETIMIBE
  10. VIBEGRON [Concomitant]
     Active Substance: VIBEGRON
  11. ROSUVASTATIN [Concomitant]
     Active Substance: ROSUVASTATIN
  12. ELDECALCITOL [Concomitant]
     Active Substance: ELDECALCITOL
  13. RYBELSUS [Concomitant]
     Active Substance: SEMAGLUTIDE
  14. RUPAFIN [Concomitant]
     Active Substance: RUPATADINE FUMARATE

REACTIONS (1)
  - Blood pressure decreased [Unknown]

NARRATIVE: CASE EVENT DATE: 20221218
